FAERS Safety Report 12235852 (Version 1)
Quarter: 2016Q2

REPORT INFORMATION
  Report Type: Other
  Country: FR (occurrence: FR)
  Receive Date: 20160404
  Receipt Date: 20160404
  Transmission Date: 20160815
  Serious: Yes (Death, Hospitalization)
  Sender: FDA-Public Use
  Company Number: FR-HQ SPECIALTY-FR-2016INT000165

PATIENT
  Age: 65 Year
  Sex: Female

DRUGS (9)
  1. ONGLYZA [Concomitant]
     Active Substance: SAXAGLIPTIN HYDROCHLORIDE
     Indication: PRODUCT USED FOR UNKNOWN INDICATION
     Dosage: 1 DF, 1 D
  2. METHOTREXATE SODIUM. [Suspect]
     Active Substance: METHOTREXATE SODIUM
     Indication: RHEUMATOID ARTHRITIS
     Dosage: 1.5 DF, 1 IN 1 W
     Route: 048
     Dates: start: 20141201, end: 20150113
  3. CORTANCYL [Suspect]
     Active Substance: PREDNISONE
     Indication: PRODUCT USED FOR UNKNOWN INDICATION
     Dosage: 3 DF, 1 D
     Dates: start: 20141201
  4. SPECIAFOLDINE [Concomitant]
     Active Substance: FOLIC ACID
     Indication: PRODUCT USED FOR UNKNOWN INDICATION
     Dosage: 1 DF, 1 W
     Dates: start: 20141201
  5. TEMESTA                            /00273201/ [Concomitant]
     Active Substance: LORAZEPAM
     Indication: PRODUCT USED FOR UNKNOWN INDICATION
     Dosage: 1 DF, 1 D
  6. PARACETAMOL [Concomitant]
     Active Substance: ACETAMINOPHEN
     Indication: PRODUCT USED FOR UNKNOWN INDICATION
     Dosage: 6 DF, 1 D
  7. HYTACAND [Concomitant]
     Active Substance: CANDESARTAN CILEXETIL\HYDROCHLOROTHIAZIDE
     Indication: PRODUCT USED FOR UNKNOWN INDICATION
     Dosage: 1 DF, 1 D
  8. METFORMIN [Concomitant]
     Active Substance: METFORMIN HYDROCHLORIDE
     Indication: PRODUCT USED FOR UNKNOWN INDICATION
     Dosage: 2 G (1 G, 2 IN 1 D)
     Dates: start: 20120601
  9. STILNOX [Concomitant]
     Active Substance: ZOLPIDEM TARTRATE
     Indication: PRODUCT USED FOR UNKNOWN INDICATION
     Dosage: 1 DF, 1 D

REACTIONS (10)
  - Fall [Unknown]
  - Haematoma [Unknown]
  - Laceration [Unknown]
  - Klebsiella sepsis [Fatal]
  - Diarrhoea [Unknown]
  - Ecchymosis [Unknown]
  - Nausea [Unknown]
  - Genital herpes [Unknown]
  - Pancytopenia [Fatal]
  - Septic shock [Fatal]

NARRATIVE: CASE EVENT DATE: 201501
